FAERS Safety Report 21414065 (Version 1)
Quarter: 2022Q4

REPORT INFORMATION
  Report Type: Spontaneous
  Country: US (occurrence: None)
  Receive Date: 20221006
  Receipt Date: 20221006
  Transmission Date: 20230112
  Serious: Yes (Hospitalization, Other)
  Sender: FDA-Public Use
  Company Number: US-Unichem Pharmaceuticals (USA) Inc-UCM202209-001013

PATIENT
  Age: 39 Year
  Sex: Female

DRUGS (8)
  1. CLONIDINE HYDROCHLORIDE [Suspect]
     Active Substance: CLONIDINE HYDROCHLORIDE
     Indication: Anxiety
  2. YOHIMBINE [Suspect]
     Active Substance: YOHIMBINE
     Indication: Supplementation therapy
     Dosage: ONE TABLET
  3. BUPRENORPHINE HYDROCHLORIDE\NALOXONE [Concomitant]
     Active Substance: BUPRENORPHINE HYDROCHLORIDE\NALOXONE
     Indication: Product used for unknown indication
     Dosage: 1.5 FILMS
  4. BUPROPION HYDROCHLORIDE [Concomitant]
     Active Substance: BUPROPION HYDROCHLORIDE
     Indication: Product used for unknown indication
  5. DESVENLAFAXINE [Concomitant]
     Active Substance: DESVENLAFAXINE
     Indication: Product used for unknown indication
  6. LISDEXAMFETAMINE [Concomitant]
     Active Substance: LISDEXAMFETAMINE
     Indication: Product used for unknown indication
     Dosage: 60 MG EVERY MORNING AND 40 MG AT NOON
  7. TRAZODONE [Concomitant]
     Active Substance: TRAZODONE HYDROCHLORIDE
     Indication: Product used for unknown indication
  8. LEVONORGESTREL [Concomitant]
     Active Substance: LEVONORGESTREL
     Indication: Product used for unknown indication
     Dosage: IUD

REACTIONS (7)
  - Basal ganglia haemorrhage [Unknown]
  - Cerebral mass effect [Unknown]
  - Hypertensive emergency [Unknown]
  - Subarachnoid haemorrhage [Unknown]
  - Sympathomimetic effect [Unknown]
  - Toxicity to various agents [Unknown]
  - Product use in unapproved indication [Unknown]
